FAERS Safety Report 19103997 (Version 3)
Quarter: 2021Q2

REPORT INFORMATION
  Report Type: Report from Study
  Country: CH (occurrence: CH)
  Receive Date: 20210407
  Receipt Date: 20210423
  Transmission Date: 20210717
  Serious: Yes (Hospitalization, Other)
  Sender: FDA-Public Use
  Company Number: CH-AMGEN-CHENI2021049214

PATIENT
  Age: 44 Year
  Sex: Male
  Weight: 83.7 kg

DRUGS (16)
  1. BLINATUMOMAB [Suspect]
     Active Substance: BLINATUMOMAB
     Indication: ACUTE LYMPHOCYTIC LEUKAEMIA
     Dosage: 9 MICROGRAM, QD
     Route: 042
     Dates: start: 20200924
  2. PLATELETS [Concomitant]
     Active Substance: HUMAN PLATELET, ALLOGENIC
     Dosage: 5 INTERNATIONAL UNIT AND 125 MILLILITER TO 300 MILLILITER
     Dates: start: 20200923, end: 20201005
  3. METHOTREXATE. [Concomitant]
     Active Substance: METHOTREXATE
     Dosage: 15 MILLIGRAM
     Dates: start: 20200923, end: 20200923
  4. PARACETAMOL [Concomitant]
     Active Substance: ACETAMINOPHEN
     Dosage: 1 GRAM
     Dates: start: 20200918, end: 20201001
  5. TAMULOSIN [Concomitant]
     Active Substance: TAMSULOSIN
     Dosage: 0.4 MILLIGRAM
     Dates: start: 20200923
  6. ESOMEPRAZOLE. [Concomitant]
     Active Substance: ESOMEPRAZOLE MAGNESIUM
     Dosage: 40 MILLIGRAM
     Dates: start: 20200919, end: 20200922
  7. DEXAMETHASONE. [Concomitant]
     Active Substance: DEXAMETHASONE
     Dosage: 10 TO 20 MILLIGRAM
     Dates: start: 20200924, end: 20201005
  8. CYTARABINE. [Concomitant]
     Active Substance: CYTARABINE
     Dosage: 30 MILLIGRAM
     Route: 037
     Dates: start: 20200923, end: 20200923
  9. RASBURICASE [Concomitant]
     Active Substance: RASBURICASE
     Dosage: 7.5 MILLIGRAM
     Dates: start: 20200918, end: 20200925
  10. ZOLPIDEM [Concomitant]
     Active Substance: ZOLPIDEM TARTRATE
     Dosage: 6.25 MILLIGRAM TO 10 MILLIGRAM
     Dates: start: 20200921, end: 20201005
  11. SOLU?CORTEF [Concomitant]
     Active Substance: HYDROCORTISONE SODIUM SUCCINATE
     Dosage: 30 MILLIGRAM
     Dates: start: 20200923, end: 20200923
  12. LACTITOL [Concomitant]
     Active Substance: LACTITOL
     Dosage: 20 MILLILITER
     Dates: start: 20200919, end: 20200919
  13. PREDNISONE. [Concomitant]
     Active Substance: PREDNISONE
     Dosage: 50 MILLIGRAM
     Dates: start: 20200919, end: 20200924
  14. HEPARIN SODIUM. [Concomitant]
     Active Substance: HEPARIN SODIUM
     Dosage: 10000 INTERNATIONAL UNIT
     Dates: start: 20200919, end: 20200926
  15. BLINATUMOMAB [Suspect]
     Active Substance: BLINATUMOMAB
     Dosage: 28 UNK
     Route: 042
  16. GLUCOSALIN [Concomitant]
     Dosage: 83.3 UNK AND 300 MILLILITER
     Dates: start: 20200919, end: 20200925

REACTIONS (13)
  - White blood cell count decreased [Recovered/Resolved]
  - Anaemia [Recovered/Resolved]
  - Epistaxis [Recovered/Resolved]
  - Proteinuria [Recovered/Resolved]
  - Febrile neutropenia [Recovered/Resolved]
  - Disseminated intravascular coagulation [Recovered/Resolved]
  - Febrile neutropenia [Recovered/Resolved]
  - White blood cell count decreased [Recovered/Resolved]
  - Cytokine release syndrome [Recovered/Resolved]
  - Lymphocyte count decreased [Recovered/Resolved]
  - White blood cell count decreased [Recovered/Resolved]
  - Neutrophil count decreased [Recovered/Resolved]
  - Headache [Recovered/Resolved]

NARRATIVE: CASE EVENT DATE: 20200925
